FAERS Safety Report 8240291 (Version 4)
Quarter: 2015Q1

REPORT INFORMATION
  Report Type: Report from Study
  Country: US (occurrence: US)
  Receive Date: 20111110
  Receipt Date: 20150108
  Transmission Date: 20150721
  Serious: Yes (Hospitalization, Other)
  Sender: FDA-Public Use
  Company Number: US-MPIJNJ-2011-05010

PATIENT
  Age: 79 Year
  Sex: Male
  Weight: 99.77 kg

DRUGS (4)
  1. ASPIRIN W/DIPYRIDAMOLE [Concomitant]
     Indication: PRODUCT USED FOR UNKNOWN INDICATION
     Dosage: 0.651 UNK, BID
     Route: 048
     Dates: start: 20110613
  2. VELCADE [Suspect]
     Active Substance: BORTEZOMIB
     Indication: PLASMA CELL MYELOMA
     Dosage: 1.4 MG, ON DAY 1, 4, 8 AND 11 OF EACH CYCLE
     Route: 042
     Dates: start: 20101230, end: 20110602
  3. DEXAMETHASONE. [Suspect]
     Active Substance: DEXAMETHASONE
     Indication: PLASMA CELL MYELOMA
     Dosage: 40 MG, 1/WEEK
     Route: 042
     Dates: start: 20101230, end: 20110602
  4. PROVENTIL HFA                      /00139501/ [Concomitant]
     Indication: CHRONIC OBSTRUCTIVE PULMONARY DISEASE

REACTIONS (11)
  - Hypoproteinaemia [Recovered/Resolved]
  - Generalised oedema [Recovering/Resolving]
  - Respiratory failure [Recovering/Resolving]
  - Syncope [Unknown]
  - Cerebrovascular accident [Unknown]
  - Mental status changes [Unknown]
  - Mental status changes [Unknown]
  - Pulmonary oedema [Not Recovered/Not Resolved]
  - Chronic obstructive pulmonary disease [Not Recovered/Not Resolved]
  - Mental status changes [Unknown]
  - Loss of consciousness [Unknown]

NARRATIVE: CASE EVENT DATE: 20110606
